FAERS Safety Report 23286676 (Version 6)
Quarter: 2024Q1

REPORT INFORMATION
  Report Type: Report from Study
  Country: GR (occurrence: GR)
  Receive Date: 20231212
  Receipt Date: 20240206
  Transmission Date: 20240409
  Serious: Yes (Hospitalization, Other)
  Sender: FDA-Public Use
  Company Number: GR-ABBVIE-5516142

PATIENT
  Age: 84 Year
  Sex: Male

DRUGS (3)
  1. CARBIDOPA\LEVODOPA [Suspect]
     Active Substance: CARBIDOPA\LEVODOPA
     Indication: Parkinson^s disease
     Dosage: MORNING DOSE: 9.0ML; CONTINUOUS RATE: 4.0ML/H; EXTRA DOSE: 1.0ML
     Route: 050
     Dates: start: 20210111
  2. CARBIDOPA\LEVODOPA [Suspect]
     Active Substance: CARBIDOPA\LEVODOPA
     Dosage: MORNING DOSE: 9.0ML; CONTINUOUS RATE: 4.0ML/H; EXTRA DOSE: 1.0ML
     Route: 050
     Dates: end: 20231126
  3. CARBIDOPA\LEVODOPA [Suspect]
     Active Substance: CARBIDOPA\LEVODOPA
     Dosage: MORNING DOSE: 9.0ML; CONTINUOUS RATE: 4.0ML/H; EXTRA DOSE: 1.0ML
     Route: 050
     Dates: start: 20231214

REACTIONS (6)
  - Respiratory tract infection [Recovered/Resolved]
  - Tremor [Unknown]
  - Pyrexia [Recovered/Resolved]
  - Oxygen saturation decreased [Recovered/Resolved]
  - Pulse abnormal [Recovered/Resolved]
  - Decubitus ulcer [Unknown]

NARRATIVE: CASE EVENT DATE: 20231009
